FAERS Safety Report 17141359 (Version 1)
Quarter: 2019Q4

REPORT INFORMATION
  Report Type: Report from Study
  Country: CA (occurrence: CA)
  Receive Date: 20191211
  Receipt Date: 20191211
  Transmission Date: 20200122
  Serious: Yes (Other)
  Sender: FDA-Public Use
  Company Number: CA-PFIZER INC-2019532428

PATIENT
  Age: 37 Year
  Sex: Male
  Weight: 56 kg

DRUGS (2)
  1. METHYLPREDNISOLONE SODIUM SUCCINATE. [Suspect]
     Active Substance: METHYLPREDNISOLONE SODIUM SUCCINATE
     Indication: CLOSTRIDIUM DIFFICILE INFECTION
  2. REMICADE [Suspect]
     Active Substance: INFLIXIMAB
     Indication: COLITIS ULCERATIVE
     Dosage: 300 MG, 1 EVERY 8 WEEKS
     Route: 042

REACTIONS (5)
  - Colitis ulcerative [Recovered/Resolved]
  - Lower respiratory tract infection [Recovered/Resolved]
  - Clostridium difficile infection [Recovered/Resolved]
  - General physical health deterioration [Recovered/Resolved]
  - Nasopharyngitis [Recovered/Resolved]
